FAERS Safety Report 4365108-8 (Version None)
Quarter: 2004Q2

REPORT INFORMATION
  Report Type: 
  Country: None (occurrence: None)
  Receive Date: 20040520
  Receipt Date: 20040513
  Transmission Date: 20050107
  Serious: Yes (Other)
  Sender: FDA-Public Use
  Company Number: FRWYE759213MAY04

PATIENT
  Age: 55 Year
  Sex: Female

DRUGS (9)
  1. EFFEXOR [Suspect]
     Indication: DEPRESSION
     Dosage: SEE IMAGE
     Route: 048
     Dates: start: 20040212, end: 20040218
  2. EFFEXOR [Suspect]
     Indication: DEPRESSION
     Dosage: SEE IMAGE
     Route: 048
     Dates: start: 20040229, end: 20040301
  3. EFFEXOR [Suspect]
     Indication: DEPRESSION
     Dosage: SEE IMAGE
     Route: 048
     Dates: start: 20040301, end: 20040407
  4. EFFEXOR [Suspect]
     Indication: DEPRESSION
     Dosage: SEE IMAGE
     Route: 048
     Dates: start: 20040408, end: 20040501
  5. EFFEXOR [Suspect]
     Indication: DEPRESSION
     Dosage: SEE IMAGE
     Route: 048
     Dates: start: 20040501, end: 20040501
  6. TENORMIN [Concomitant]
  7. ZESTORETIC [Concomitant]
  8. FENOFIBRATE [Concomitant]
  9. LEVOTHYROX (LEVOTHYROXINE SODIUM) [Concomitant]

REACTIONS (6)
  - FALL [None]
  - JOINT INJURY [None]
  - LABILE BLOOD PRESSURE [None]
  - ORTHOSTATIC HYPOTENSION [None]
  - PULSE ABSENT [None]
  - SYNCOPE VASOVAGAL [None]
